FAERS Safety Report 17876118 (Version 1)
Quarter: 2020Q2

REPORT INFORMATION
  Report Type: Spontaneous
  Country: US (occurrence: US)
  Receive Date: 20200609
  Receipt Date: 20200609
  Transmission Date: 20200714
  Serious: No
  Sender: FDA-Public Use
  Company Number: None

PATIENT
  Age: 74 Year
  Sex: Female
  Weight: 83.7 kg

DRUGS (17)
  1. VITAMIN B12 [Concomitant]
     Active Substance: CYANOCOBALAMIN
  2. TYLENOL [Concomitant]
     Active Substance: ACETAMINOPHEN
  3. AROMASIN [Concomitant]
     Active Substance: EXEMESTANE
  4. FOLVITE-D [Concomitant]
  5. LASIX [Concomitant]
     Active Substance: FUROSEMIDE
  6. NORCO [Concomitant]
     Active Substance: ACETAMINOPHEN\HYDROCODONE BITARTRATE
  7. VIMPAT [Concomitant]
     Active Substance: LACOSAMIDE
  8. OMEPRAZOLE. [Concomitant]
     Active Substance: OMEPRAZOLE
  9. EVEROLIMUS. [Suspect]
     Active Substance: EVEROLIMUS
     Indication: BREAST CANCER
     Route: 048
     Dates: start: 20200304, end: 20200609
  10. XARELTO [Concomitant]
     Active Substance: RIVAROXABAN
  11. AFINITOR [Concomitant]
     Active Substance: EVEROLIMUS
  12. MAG-OXIDE [Concomitant]
     Active Substance: MAGNESIUM OXIDE
  13. POTASSIUM [Concomitant]
     Active Substance: POTASSIUM
  14. VITAMIN E [Concomitant]
     Active Substance: .ALPHA.-TOCOPHEROL
  15. CARVEDILOL. [Concomitant]
     Active Substance: CARVEDILOL
  16. ZESTRIL [Concomitant]
     Active Substance: LISINOPRIL
  17. MIRALAX [Concomitant]
     Active Substance: POLYETHYLENE GLYCOL 3350

REACTIONS (2)
  - Scan abnormal [None]
  - Brain natriuretic peptide abnormal [None]

NARRATIVE: CASE EVENT DATE: 20200609
